FAERS Safety Report 14333608 (Version 1)
Quarter: 2017Q4

REPORT INFORMATION
  Report Type: Spontaneous
  Country: FR (occurrence: FR)
  Receive Date: 20171228
  Receipt Date: 20171228
  Transmission Date: 20180321
  Serious: Yes (Other)
  Sender: FDA-Public Use
  Company Number: FR-B.I. PHARMACEUTICALS,INC./RIDGEFIELD-2017-BI-067920

PATIENT
  Age: 39 Year
  Sex: Female

DRUGS (2)
  1. SPIRIVA [Suspect]
     Active Substance: TIOTROPIUM BROMIDE MONOHYDRATE
     Indication: LUNG DISORDER
     Route: 065
  2. INDACATEROL [Concomitant]
     Active Substance: INDACATEROL
     Indication: LUNG DISORDER
     Route: 065

REACTIONS (5)
  - Thyroglossal cyst [Unknown]
  - Paranasal sinus aplasia [Unknown]
  - Nasal septum deviation [Unknown]
  - Vocal cord thickening [Unknown]
  - Hypoplastic nasal cartilage [Unknown]
